FAERS Safety Report 19869324 (Version 1)
Quarter: 2021Q3

REPORT INFORMATION
  Report Type: Spontaneous
  Country: AU (occurrence: AU)
  Receive Date: 20210922
  Receipt Date: 20210922
  Transmission Date: 20211014
  Serious: Yes (Other)
  Sender: FDA-Public Use
  Company Number: AU-ASTRAZENECA-2021A726491

PATIENT
  Age: 37 Year
  Sex: Female
  Weight: 74 kg

DRUGS (2)
  1. OXIS [Suspect]
     Active Substance: FORMOTEROL FUMARATE
     Indication: LUNG DISORDER
     Dosage: 1.0DF ONCE/SINGLE ADMINISTRATION
     Route: 055
     Dates: start: 20210913, end: 20210913
  2. SYMBICORT [Suspect]
     Active Substance: BUDESONIDE\FORMOTEROL FUMARATE DIHYDRATE
     Dosage: UNKNOWN
     Route: 055

REACTIONS (3)
  - Chest pain [Recovering/Resolving]
  - Suicidal ideation [Unknown]
  - Agitation [Recovered/Resolved with Sequelae]

NARRATIVE: CASE EVENT DATE: 20210913
